FAERS Safety Report 14076498 (Version 1)
Quarter: 2017Q4

REPORT INFORMATION
  Report Type: Spontaneous
  Country: US (occurrence: US)
  Receive Date: 20171011
  Receipt Date: 20171011
  Transmission Date: 20180321
  Serious: Yes (Other)
  Sender: FDA-Public Use
  Company Number: US-FRESENIUS KABI-FK201708417

PATIENT
  Age: 56 Year
  Sex: Male

DRUGS (1)
  1. GENTAMICIN (MANUFACTURER UNKNOWN) [Suspect]
     Active Substance: GENTAMICIN
     Indication: MENIERE^S DISEASE
     Route: 050

REACTIONS (4)
  - Strabismus [Recovered/Resolved]
  - Product use in unapproved indication [Recovered/Resolved]
  - Vestibular disorder [Recovered/Resolved]
  - Product use issue [Recovered/Resolved]
